FAERS Safety Report 25318924 (Version 2)
Quarter: 2025Q2

REPORT INFORMATION
  Report Type: Report from Study
  Country: US (occurrence: US)
  Receive Date: 20250515
  Receipt Date: 20250610
  Transmission Date: 20250716
  Serious: Yes (Other)
  Sender: TAKEDA
  Company Number: US-TAKEDA-2025TUS027270

PATIENT
  Sex: Female

DRUGS (1)
  1. VEDOLIZUMAB [Suspect]
     Active Substance: VEDOLIZUMAB
     Indication: Product used for unknown indication
     Dosage: 300 MILLIGRAM, Q6WEEKS

REACTIONS (5)
  - Rectal haemorrhage [Unknown]
  - Defaecation urgency [Unknown]
  - Diarrhoea [Unknown]
  - Stress [Unknown]
  - Feeling abnormal [Unknown]
